FAERS Safety Report 7478192-X (Version None)
Quarter: 2011Q2

REPORT INFORMATION
  Report Type: 
  Country: None (occurrence: None)
  Receive Date: 20110513
  Receipt Date: 20110505
  Transmission Date: 20111010
  Serious: Yes (Hospitalization)
  Sender: FDA-Public Use
  Company Number: PHHY2011US39711

PATIENT
  Sex: Male

DRUGS (2)
  1. EXJADE [Suspect]
     Route: 048
  2. EXJADE [Suspect]
     Indication: MYELODYSPLASTIC SYNDROME
     Dosage: 2 TABLETS OF 1000 MG AND TAKE BY MOUTH EVERY DAY
     Route: 048

REACTIONS (2)
  - PNEUMONIA [None]
  - DIARRHOEA [None]
